FAERS Safety Report 10103618 (Version 1)
Quarter: 2014Q2

REPORT INFORMATION
  Report Type: Spontaneous
  Country: CH (occurrence: CH)
  Receive Date: 20140424
  Receipt Date: 20140424
  Transmission Date: 20141212
  Serious: Yes (Hospitalization, Other)
  Sender: FDA-Public Use
  Company Number: CH-PFIZER INC-2014111995

PATIENT
  Age: 29 Year
  Sex: Female

DRUGS (4)
  1. SERTRALIN PFIZER [Suspect]
     Indication: DEPRESSION
     Dosage: 50 MG, UNK
     Route: 048
  2. SERTRALIN PFIZER [Suspect]
     Dosage: 50 MG, 2X/DAY
     Route: 048
     Dates: start: 20131028
  3. MAXALT [Suspect]
     Indication: MIGRAINE
     Dosage: 10 MG, UNK
     Route: 048
  4. MAXALT [Suspect]
     Dosage: 10 MG, 2X/DAY
     Route: 048
     Dates: start: 20131028

REACTIONS (5)
  - Muscle contractions involuntary [Unknown]
  - Tremor [Unknown]
  - Hyperreflexia [Unknown]
  - Tachycardia [Unknown]
  - Hypotension [Unknown]
